FAERS Safety Report 11622525 (Version 1)
Quarter: 2015Q4

REPORT INFORMATION
  Report Type: Spontaneous
  Country: US (occurrence: US)
  Receive Date: 20151013
  Receipt Date: 20151013
  Transmission Date: 20160304
  Serious: No
  Sender: FDA-Public Use
  Company Number: US-JNJFOC-20150104887

PATIENT
  Age: 8 Month
  Sex: Male

DRUGS (1)
  1. TYLENOL [Suspect]
     Active Substance: ACETAMINOPHEN
     Indication: PYREXIA
     Route: 065
     Dates: start: 20150106

REACTIONS (3)
  - Drug effect decreased [Unknown]
  - Incorrect dose administered [Unknown]
  - Intentional product misuse [Unknown]
